FAERS Safety Report 7487483-8 (Version None)
Quarter: 2011Q2

REPORT INFORMATION
  Report Type: 
  Country: None (occurrence: None)
  Receive Date: 20110518
  Receipt Date: 20110511
  Transmission Date: 20111010
  Serious: Yes (Other)
  Sender: FDA-Public Use
  Company Number: US-ELI_LILLY_AND_COMPANY-US201103006919

PATIENT
  Sex: Female

DRUGS (7)
  1. BYETTA [Suspect]
     Dosage: 5 UG, BID
  2. QUINAPRIL [Concomitant]
  3. BYETTA [Suspect]
     Dosage: 10 UG, BID
  4. HYDROCHLOROTHIAZIDE [Concomitant]
     Dosage: UNK, QD
  5. METFORMIN HCL [Concomitant]
     Dosage: UNK, BID
  6. PLAVIX [Concomitant]
     Dosage: UNK, QD
  7. LOPRESSOR [Concomitant]
     Dosage: 20 MG, BID

REACTIONS (1)
  - VENTRICULAR EXTRASYSTOLES [None]
